FAERS Safety Report 13689631 (Version 3)
Quarter: 2017Q4

REPORT INFORMATION
  Report Type: Other
  Country: CA (occurrence: CA)
  Receive Date: 20170626
  Receipt Date: 20171103
  Transmission Date: 20180320
  Serious: Yes (Hospitalization, Other)
  Sender: FDA-Public Use
  Company Number: CA-APOTEX-2017AP013193

PATIENT
  Age: 42 Year
  Sex: Female

DRUGS (6)
  1. PREDNISONE. [Suspect]
     Active Substance: PREDNISONE
     Indication: ORGANISING PNEUMONIA
     Dosage: 1 MG/KG, UNK
     Route: 065
  2. CYCLOPHOSPHAMIDE. [Suspect]
     Active Substance: CYCLOPHOSPHAMIDE
     Indication: BREAST CANCER
     Route: 065
  3. PREDNISONE. [Suspect]
     Active Substance: PREDNISONE
     Dosage: 12.5 MG, QD
     Route: 048
  4. APO-MYCOPHENOLATE [Suspect]
     Active Substance: MYCOPHENOLIC ACID
     Indication: ORGANISING PNEUMONIA
     Route: 065
  5. DOCETAXEL. [Suspect]
     Active Substance: DOCETAXEL
     Indication: BREAST CANCER
     Route: 065
  6. TRASTUZUMAB. [Suspect]
     Active Substance: TRASTUZUMAB
     Indication: BREAST CANCER
     Route: 065

REACTIONS (10)
  - Hypoxia [Recovering/Resolving]
  - Multifocal micronodular pneumocyte hyperplasia [Recovering/Resolving]
  - Bronchial polyp [Recovering/Resolving]
  - Computerised tomogram thorax abnormal [Recovering/Resolving]
  - Therapeutic response decreased [Recovering/Resolving]
  - Organising pneumonia [Recovering/Resolving]
  - Product use issue [Recovering/Resolving]
  - Biopsy lung abnormal [Recovering/Resolving]
  - Respiratory failure [Recovering/Resolving]
  - Pulmonary oedema [Recovering/Resolving]
